FAERS Safety Report 7389886-9 (Version None)
Quarter: 2011Q2

REPORT INFORMATION
  Report Type: 
  Country: None (occurrence: None)
  Receive Date: 20110401
  Receipt Date: 20100304
  Transmission Date: 20111010
  Serious: Yes (Death, Other)
  Sender: FDA-Public Use
  Company Number: US-BAYER-201015307NA

PATIENT
  Sex: Male
  Weight: 79 kg

DRUGS (1)
  1. TRASYLOL [Suspect]
     Indication: CARDIAC OPERATION
     Dates: start: 20031024

REACTIONS (5)
  - PAIN [None]
  - RENAL FAILURE ACUTE [None]
  - DEATH [None]
  - RENAL FAILURE [None]
  - INJURY [None]
